FAERS Safety Report 5412223-3 (Version None)
Quarter: 2007Q3

REPORT INFORMATION
  Report Type: 
  Country: None (occurrence: None)
  Receive Date: 20070810
  Receipt Date: 20070810
  Transmission Date: 20080115
  Serious: Yes (Hospitalization)
  Sender: FDA-Public Use
  Company Number: None

PATIENT
  Age: 77 Year
  Sex: Male

DRUGS (2)
  1. OXYCODONE HCL [Suspect]
     Indication: NECK PAIN
     Dosage: 20MG OTHER PO
     Route: 048
     Dates: start: 20070716
  2. FUROSEMIDE [Suspect]
     Indication: CARDIAC FAILURE CHRONIC
     Dosage: 80MG BID PO
     Route: 048
     Dates: start: 20070314

REACTIONS (6)
  - ARRHYTHMIA [None]
  - CONFUSIONAL STATE [None]
  - HEADACHE [None]
  - OVERDOSE [None]
  - PRESYNCOPE [None]
  - URINARY TRACT INFECTION [None]
